FAERS Safety Report 20347928 (Version 3)
Quarter: 2023Q1

REPORT INFORMATION
  Report Type: Spontaneous
  Country: JP (occurrence: JP)
  Receive Date: 20220118
  Receipt Date: 20230321
  Transmission Date: 20230418
  Serious: Yes (Hospitalization, Other)
  Sender: FDA-Public Use
  Company Number: JP-NOVARTISPH-NVSJ2022JP000840

PATIENT
  Sex: Male

DRUGS (8)
  1. AMLODIPINE [Suspect]
     Active Substance: AMLODIPINE BESYLATE
     Indication: Hypertension
     Dosage: 5 MG, QD
     Route: 048
  2. ATENOLOL [Suspect]
     Active Substance: ATENOLOL
     Indication: Hypertension
     Dosage: 50 MG, QD
     Route: 048
  3. TELMISARTAN AND AMLODIPINE [Suspect]
     Active Substance: AMLODIPINE BESYLATE\TELMISARTAN
     Indication: Hypertension
     Dosage: 1 DOSAGE FORM, QD
     Route: 048
  4. METFORMIN HYDROCHLORIDE [Concomitant]
     Active Substance: METFORMIN HYDROCHLORIDE
     Indication: Type 2 diabetes mellitus
     Dosage: 500 MG, TID
     Route: 048
  5. FEBUXOSTAT [Concomitant]
     Active Substance: FEBUXOSTAT
     Indication: Product used for unknown indication
     Dosage: 20 MG, QD
     Route: 048
  6. ETHYL LOFLAZEPATE [Concomitant]
     Active Substance: ETHYL LOFLAZEPATE
     Indication: Product used for unknown indication
     Dosage: 1 MG, PRESCRIBED BY A LOCAL DOCTOR FOR 11 DAYS ON DAY Y-3
     Route: 048
  7. PAROXETINE [Concomitant]
     Active Substance: PAROXETINE
     Indication: Product used for unknown indication
     Dosage: 30 MG, QD
     Route: 048
  8. PITAVASTATIN CALCIUM [Concomitant]
     Active Substance: PITAVASTATIN CALCIUM
     Indication: Product used for unknown indication
     Dosage: 1 MG, PRESCRIBED BY A LOCAL DOCTOR FOR 30 DAYS ON DAY Y-5
     Route: 048

REACTIONS (7)
  - Toxicity to various agents [Unknown]
  - Shock [Recovered/Resolved]
  - Bradycardia [Recovering/Resolving]
  - Hypotension [Recovered/Resolved]
  - Altered state of consciousness [Recovered/Resolved]
  - Suicide attempt [Unknown]
  - Intentional overdose [Unknown]
